FAERS Safety Report 5812557-4 (Version None)
Quarter: 2008Q3

REPORT INFORMATION
  Report Type: 
  Country: None (occurrence: None)
  Receive Date: 20080717
  Receipt Date: 20080707
  Transmission Date: 20090109
  Serious: Yes (Disabling)
  Sender: FDA-Public Use
  Company Number: PHBS2008GB05005

PATIENT

DRUGS (5)
  1. STALEVO 100 [Suspect]
     Indication: PARKINSON'S DISEASE
     Dosage: 5 UNK, QD
     Route: 048
     Dates: start: 20050401, end: 20080701
  2. ALFUZOSIN HCL [Concomitant]
     Dosage: UNK
     Route: 065
  3. OMEPRAZOLE [Concomitant]
     Dosage: UNK
     Route: 065
  4. PRAMIPEXOLE DIHYDROCHLORIDE [Concomitant]
     Dosage: UNK
     Route: 065
  5. TOLTERODINE TARTRATE [Concomitant]
     Dosage: UNK
     Route: 065

REACTIONS (4)
  - APPETITE DISORDER [None]
  - BRUXISM [None]
  - MASTICATION DISORDER [None]
  - TOOTH LOSS [None]
